FAERS Safety Report 5963352-7 (Version None)
Quarter: 2008Q4

REPORT INFORMATION
  Report Type: 
  Country: None (occurrence: None)
  Receive Date: 20081124
  Receipt Date: 20081117
  Transmission Date: 20090506
  Serious: Yes (Hospitalization)
  Sender: FDA-Public Use
  Company Number: A0757777A

PATIENT
  Age: 41 Year
  Sex: Female
  Weight: 84.5 kg

DRUGS (8)
  1. AVANDIA [Suspect]
     Dosage: 8MG PER DAY
     Route: 048
     Dates: start: 19991228, end: 20060530
  2. TRAZODONE HCL [Concomitant]
  3. HUMULIN [Concomitant]
  4. REZULIN [Concomitant]
  5. METOPROLOL [Concomitant]
  6. METFORMIN HCL [Concomitant]
  7. NITROGLYCERIN [Concomitant]
  8. TOPROL-XL [Concomitant]

REACTIONS (4)
  - ARTERIOSCLEROSIS [None]
  - CORONARY ARTERY DISEASE [None]
  - MYOCARDIAL INFARCTION [None]
  - WEIGHT INCREASED [None]
